FAERS Safety Report 15409272 (Version 10)
Quarter: 2018Q4

REPORT INFORMATION
  Report Type: Spontaneous
  Country: US (occurrence: US)
  Receive Date: 20180920
  Receipt Date: 20181206
  Transmission Date: 20190204
  Serious: Yes (Hospitalization, Other)
  Sender: FDA-Public Use
  Company Number: US-UNITED THERAPEUTICS-UNT-2018-014701

PATIENT
  Age: 61 Year
  Sex: Female
  Weight: 110.2 kg

DRUGS (10)
  1. REMODULIN [Suspect]
     Active Substance: TREPROSTINIL
     Dosage: 0.016 ?G/KG, CONTINUING
     Route: 058
  2. REMODULIN [Suspect]
     Active Substance: TREPROSTINIL
     Dosage: 0.017 ?G/KG, CONTINUING
     Route: 058
  3. REMODULIN [Suspect]
     Active Substance: TREPROSTINIL
     Dosage: 0.019 ?G/KG, CONTINUING
     Route: 058
     Dates: start: 20181129
  4. LOPERAMIDE                         /00384302/ [Suspect]
     Active Substance: LOPERAMIDE HYDROCHLORIDE
     Indication: PRODUCT USED FOR UNKNOWN INDICATION
     Dosage: UNK
     Route: 065
  5. DILTIAZEM. [Concomitant]
     Active Substance: DILTIAZEM
     Indication: PRODUCT USED FOR UNKNOWN INDICATION
     Route: 065
  6. REMODULIN [Suspect]
     Active Substance: TREPROSTINIL
     Indication: PULMONARY HYPERTENSION
     Dosage: UNK
     Route: 058
  7. REMODULIN [Suspect]
     Active Substance: TREPROSTINIL
     Indication: PULMONARY ARTERIAL HYPERTENSION
     Dosage: 0.014 ?G/KG, CONTINUING
     Route: 058
     Dates: start: 20180710
  8. ZAROXOLYN [Suspect]
     Active Substance: METOLAZONE
     Indication: PRODUCT USED FOR UNKNOWN INDICATION
     Dosage: UNK
     Route: 065
     Dates: start: 201809
  9. REMODULIN [Suspect]
     Active Substance: TREPROSTINIL
     Dosage: 0.012 ?G/KG, CONTINUING
     Route: 058
  10. BUMEX [Suspect]
     Active Substance: BUMETANIDE
     Indication: FLUID RETENTION
     Route: 065

REACTIONS (36)
  - Back injury [Unknown]
  - Fluid retention [Unknown]
  - Feeling hot [Unknown]
  - Peripheral swelling [Unknown]
  - Vomiting [Unknown]
  - Stress [Unknown]
  - Feeding disorder [Unknown]
  - Throat irritation [Unknown]
  - Asthenia [Unknown]
  - Productive cough [Unknown]
  - Brain natriuretic peptide increased [Unknown]
  - Myalgia [Unknown]
  - Pain in extremity [Unknown]
  - Cough [Unknown]
  - Pain [Unknown]
  - Pulmonary arterial pressure abnormal [Unknown]
  - Hypotension [Unknown]
  - Muscle spasms [Unknown]
  - Abdominal discomfort [Unknown]
  - Dyspnoea [Unknown]
  - Bloody discharge [Unknown]
  - Constipation [Unknown]
  - Chest pain [Unknown]
  - Pneumonia [Unknown]
  - Weight decreased [Unknown]
  - Ascites [Unknown]
  - Diarrhoea [Not Recovered/Not Resolved]
  - Palpitations [Unknown]
  - Gait disturbance [Unknown]
  - Gout [Unknown]
  - Cardiac failure congestive [Unknown]
  - Headache [Unknown]
  - Feeling abnormal [Unknown]
  - Dizziness [Unknown]
  - Muscular weakness [Unknown]
  - Insomnia [Unknown]

NARRATIVE: CASE EVENT DATE: 2018
